FAERS Safety Report 10473483 (Version 2)
Quarter: 2014Q4

REPORT INFORMATION
  Report Type: Report from Study
  Country: MX (occurrence: MX)
  Receive Date: 20140924
  Receipt Date: 20141024
  Transmission Date: 20150528
  Serious: Yes (Other)
  Sender: FDA-Public Use
  Company Number: PHHY2014MX124510

PATIENT
  Age: 85 Year
  Sex: Male

DRUGS (11)
  1. EXELON PATCH [Suspect]
     Active Substance: RIVASTIGMINE
     Dosage: 9.5 MG, QD
     Route: 062
  2. FOLIC ACID. [Concomitant]
     Active Substance: FOLIC ACID
     Indication: BRAIN HYPOXIA
     Dosage: 1 UNK, QD
     Route: 065
     Dates: start: 2006
  3. OMEPRAZOLE. [Concomitant]
     Active Substance: OMEPRAZOLE
     Indication: PROPHYLAXIS
     Dosage: 1 UNK, QD
     Route: 065
     Dates: start: 201401
  4. ZYPREXA [Concomitant]
     Active Substance: OLANZAPINE
     Indication: PSYCHOTIC DISORDER
     Dosage: 10 MG, QD
     Route: 065
     Dates: start: 2008
  5. EXELON PATCH [Suspect]
     Active Substance: RIVASTIGMINE
     Indication: OFF LABEL USE
     Dosage: 9.5 MG, Q72H
     Route: 062
  6. EXELON PATCH [Suspect]
     Active Substance: RIVASTIGMINE
     Indication: CEREBROVASCULAR INSUFFICIENCY
     Dosage: 4.6 MG (5 CM2), DAILY
     Route: 062
     Dates: start: 201303
  7. TAMSULOSIN [Concomitant]
     Active Substance: TAMSULOSIN
     Indication: PROSTATIC DISORDER
     Dosage: 1 UNK, QD
     Route: 065
     Dates: start: 2011
  8. MEMANTINE [Concomitant]
     Active Substance: MEMANTINE
     Indication: BRAIN HYPOXIA
     Dosage: 20 MG, Q72H
     Route: 065
     Dates: start: 201303
  9. RANITIDINE [Concomitant]
     Active Substance: RANITIDINE\RANITIDINE HYDROCHLORIDE
     Indication: GASTRIC PH DECREASED
     Dosage: 2 UNK, QD
     Route: 065
     Dates: start: 2009
  10. HEPA MERZ [Concomitant]
     Indication: LIVER DISORDER
     Dosage: 1 UNK, Q72H
     Route: 065
     Dates: start: 2006
  11. FINASTERIDE. [Concomitant]
     Active Substance: FINASTERIDE
     Indication: PROPHYLAXIS
     Dosage: 1 UNK, QD
     Route: 065
     Dates: start: 2011

REACTIONS (4)
  - Visual impairment [Not Recovered/Not Resolved]
  - Inappropriate schedule of drug administration [Unknown]
  - Depression [Not Recovered/Not Resolved]
  - Macular degeneration [Not Recovered/Not Resolved]
